FAERS Safety Report 7822193-6 (Version None)
Quarter: 2011Q4

REPORT INFORMATION
  Report Type: 
  Country: None (occurrence: None)
  Receive Date: 20111018
  Receipt Date: 20111007
  Transmission Date: 20120403
  Serious: Yes (Hospitalization)
  Sender: FDA-Public Use
  Company Number: PHEH2011US06279

PATIENT
  Age: 79 Year
  Sex: Male
  Weight: 172 kg

DRUGS (1)
  1. TOBI [Suspect]
     Dosage: 300 MG, DAILY FOR 10 DAYS EACH MONTH
     Dates: start: 20100408

REACTIONS (1)
  - UPPER RESPIRATORY TRACT INFECTION [None]
